FAERS Safety Report 8933474 (Version 1)
Quarter: 2012Q4

REPORT INFORMATION
  Report Type: 
  Country: US (occurrence: US)
  Receive Date: 20121128
  Receipt Date: 20121128
  Transmission Date: 20130627
  Serious: No
  Sender: FDA-Public Use
  Company Number: US-ABBOTT-12P-163-1006956-00

PATIENT
  Sex: Male
  Weight: 102.15 kg

DRUGS (6)
  1. ANDROGEL [Suspect]
     Indication: BLOOD TESTOSTERONE DECREASED
     Dosage: 2 pump actuations per day
     Dates: start: 201209
  2. METOPROLOL [Concomitant]
     Indication: HYPERTENSION
  3. FLOMAX [Concomitant]
     Indication: PROSTATIC DISORDER
  4. PRILOSEC [Concomitant]
     Indication: GASTROOESOPHAGEAL REFLUX DISEASE
  5. ALLERGY [Concomitant]
     Indication: HYPERSENSITIVITY
  6. FINPECIA [Concomitant]
     Indication: HYPERTENSION

REACTIONS (3)
  - Asthenia [Not Recovered/Not Resolved]
  - Fatigue [Not Recovered/Not Resolved]
  - Blood pressure increased [Not Recovered/Not Resolved]
